FAERS Safety Report 7945653-6 (Version None)
Quarter: 2011Q4

REPORT INFORMATION
  Report Type: 
  Country: None (occurrence: None)
  Receive Date: 20111129
  Receipt Date: 20111117
  Transmission Date: 20120403
  Serious: Yes (Death, Hospitalization)
  Sender: FDA-Public Use
  Company Number: JP-AMGEN-JPNCT2011002368

PATIENT
  Age: 75 Year
  Sex: Male
  Weight: 51 kg

DRUGS (17)
  1. FLUOROURACIL [Suspect]
     Route: 041
     Dates: start: 20100817
  2. HIRUDOID [Concomitant]
     Dosage: UNK
     Route: 062
  3. METHYCOBAL [Concomitant]
     Dosage: UNK
     Route: 048
  4. MINOCYCLINE HYDROCHLORIDE [Concomitant]
     Dosage: UNK
     Route: 048
  5. OLOPATADINE HCL [Concomitant]
     Dosage: UNK
     Route: 048
  6. PANITUMUMAB [Suspect]
     Dosage: 6 MG/KG, Q2WK
     Route: 041
     Dates: start: 20100909, end: 20101026
  7. IRINOTECAN HCL [Suspect]
     Indication: COLORECTAL CANCER
     Route: 041
     Dates: start: 20100817
  8. FLUOROURACIL [Suspect]
     Indication: COLORECTAL CANCER
     Route: 040
     Dates: start: 20100817
  9. DIOVAN [Concomitant]
     Dosage: UNK
     Route: 048
  10. PYDOXAL [Concomitant]
     Dosage: UNK
     Route: 048
  11. MAGMITT [Concomitant]
     Dosage: UNK
     Route: 048
  12. ANTIHISTAMINES [Concomitant]
     Indication: PROPHYLAXIS
     Dosage: UNK
     Route: 065
  13. LEVOLEUCOVORIN CALCIUM [Concomitant]
     Indication: COLORECTAL CANCER
     Route: 041
     Dates: start: 20100817
  14. OMEPRAZOLE [Concomitant]
     Indication: GASTROOESOPHAGEAL REFLUX DISEASE
     Dosage: UNK
     Route: 048
  15. MUCOSTA [Concomitant]
     Indication: GASTRIC ULCER
     Dosage: UNK
     Route: 048
  16. PANITUMUMAB [Suspect]
     Indication: COLORECTAL CANCER
     Dosage: 6 MG/KG, Q2WK
     Route: 041
     Dates: start: 20100817, end: 20110817
  17. PLAVIX [Concomitant]
     Indication: ARTERIOSCLEROSIS OBLITERANS
     Dosage: UNK
     Route: 048

REACTIONS (6)
  - COLORECTAL CANCER [None]
  - DERMATITIS ACNEIFORM [None]
  - STOMATITIS [None]
  - DRY SKIN [None]
  - UPPER RESPIRATORY TRACT INFLAMMATION [None]
  - BRONCHITIS [None]
